FAERS Safety Report 20541600 (Version 1)
Quarter: 2022Q1

REPORT INFORMATION
  Report Type: Spontaneous
  Country: CA (occurrence: CA)
  Receive Date: 20220302
  Receipt Date: 20220302
  Transmission Date: 20220423
  Serious: Yes (Hospitalization, Other)
  Sender: FDA-Public Use
  Company Number: CA-JNJFOC-20211158759

PATIENT
  Age: 73 Year
  Sex: Female
  Weight: 39.8 kg

DRUGS (7)
  1. STELARA [Suspect]
     Active Substance: USTEKINUMAB
     Indication: Crohn^s disease
     Dosage: LAST DOSE ON 16//NOV/2021
     Route: 058
     Dates: start: 201704
  2. ENTOCORT [Suspect]
     Active Substance: BUDESONIDE
     Indication: Product used for unknown indication
     Route: 065
     Dates: start: 202107, end: 202108
  3. CORTISONE [Suspect]
     Active Substance: CORTISONE
     Indication: Product used for unknown indication
     Route: 065
     Dates: start: 20210722, end: 20210915
  4. CORTISONE [Suspect]
     Active Substance: CORTISONE
     Dates: start: 20211109
  5. IRON [Concomitant]
     Active Substance: IRON
  6. PREDNISONE [Concomitant]
     Active Substance: PREDNISONE
     Dates: start: 20211109
  7. VITAMIN B12 [Concomitant]
     Active Substance: CYANOCOBALAMIN

REACTIONS (7)
  - Intestinal obstruction [Unknown]
  - Crohn^s disease [Unknown]
  - Oedema peripheral [Unknown]
  - Arthralgia [Unknown]
  - Treatment failure [Unknown]
  - Off label use [Unknown]
  - Product use issue [Unknown]
